FAERS Safety Report 12866793 (Version 6)
Quarter: 2017Q2

REPORT INFORMATION
  Report Type: Spontaneous
  Country: SK (occurrence: SK)
  Receive Date: 20161020
  Receipt Date: 20170526
  Transmission Date: 20170830
  Serious: Yes (Death, Life-Threatening, Hospitalization)
  Sender: FDA-Public Use
  Company Number: SK-NAPPMUNDI-GBR-2016-0041163

PATIENT
  Age: 77 Year
  Sex: Male
  Weight: 49.7 kg

DRUGS (10)
  1. SOLVOLAN [Concomitant]
     Indication: COUGH
     Dosage: 5 ML, TID
     Route: 048
     Dates: start: 20161006, end: 20161014
  2. PALLADONE [Suspect]
     Active Substance: HYDROMORPHONE HYDROCHLORIDE
     Dosage: UNK UNK, BID
     Route: 048
     Dates: start: 20160413
  3. SEVREDOL [Suspect]
     Active Substance: MORPHINE
     Indication: CANCER PAIN
     Dosage: 10 MG, PRN (STRENGTH 10 MG, MAX 80 MG PER DAY)
     Route: 048
     Dates: start: 20160714
  4. SEVREDOL [Suspect]
     Active Substance: MORPHINE
     Dosage: UNK, PRN
     Route: 048
     Dates: start: 20160413
  5. PALLADONE [Suspect]
     Active Substance: HYDROMORPHONE HYDROCHLORIDE
     Indication: CANCER PAIN
     Dosage: 48 MG, DAILY SCHEDULE 20 MG-0-24MG
     Route: 048
     Dates: start: 20160928, end: 201610
  6. PALLADONE [Suspect]
     Active Substance: HYDROMORPHONE HYDROCHLORIDE
     Dosage: 16 MG, BID
     Route: 048
     Dates: start: 20160804, end: 20160817
  7. ST. JOHN^S WORT                    /01166801/ [Concomitant]
     Active Substance: ST. JOHN^S WORT
     Indication: DEPRESSION
     Dosage: 1 DF (1 APP), AS NEEDED
     Route: 048
     Dates: start: 20160930
  8. FRAXIPARINE                        /01437701/ [Concomitant]
     Active Substance: NADROPARIN CALCIUM
     Indication: THROMBOSIS PROPHYLAXIS
     Dosage: 0.3 ML, DAILY
     Route: 058
     Dates: start: 20161006, end: 20161014
  9. PALLADONE [Suspect]
     Active Substance: HYDROMORPHONE HYDROCHLORIDE
     Dosage: 20 MG, BID; 1-0-1
     Route: 048
     Dates: start: 20160818, end: 20160927
  10. PALLADONE [Suspect]
     Active Substance: HYDROMORPHONE HYDROCHLORIDE
     Dosage: 12 MG,DOSE SCHEME:1-0-2
     Route: 048
     Dates: start: 20160714, end: 20160803

REACTIONS (6)
  - Acidosis [Fatal]
  - Malnutrition [Fatal]
  - Osteolysis [Not Recovered/Not Resolved]
  - Disease progression [Fatal]
  - Metastases to chest wall [Not Recovered/Not Resolved]
  - Rib fracture [Not Recovered/Not Resolved]

NARRATIVE: CASE EVENT DATE: 20160928
